FAERS Safety Report 21327856 (Version 9)
Quarter: 2024Q1

REPORT INFORMATION
  Report Type: Other
  Country: BE (occurrence: None)
  Receive Date: 20220913
  Receipt Date: 20240326
  Transmission Date: 20240409
  Serious: Yes (Other)
  Sender: FDA-Public Use
  Company Number: BE-ROCHE-2930014

PATIENT
  Age: 57 Year
  Sex: Female
  Weight: 80 kg

DRUGS (21)
  1. OCRELIZUMAB [Suspect]
     Active Substance: OCRELIZUMAB
     Indication: Relapsing-remitting multiple sclerosis
     Route: 042
     Dates: start: 20200102, end: 20200102
  2. OCRELIZUMAB [Suspect]
     Active Substance: OCRELIZUMAB
     Route: 042
     Dates: start: 20200116, end: 20200116
  3. OCRELIZUMAB [Suspect]
     Active Substance: OCRELIZUMAB
     Route: 042
     Dates: start: 20200713, end: 20200713
  4. OCRELIZUMAB [Suspect]
     Active Substance: OCRELIZUMAB
     Route: 042
     Dates: start: 20220302, end: 20220302
  5. OCRELIZUMAB [Suspect]
     Active Substance: OCRELIZUMAB
     Route: 042
     Dates: start: 20220905, end: 20220905
  6. OCRELIZUMAB [Suspect]
     Active Substance: OCRELIZUMAB
     Route: 042
     Dates: start: 20210205, end: 20210205
  7. OCRELIZUMAB [Suspect]
     Active Substance: OCRELIZUMAB
     Route: 042
     Dates: start: 20210903, end: 20210903
  8. OCRELIZUMAB [Suspect]
     Active Substance: OCRELIZUMAB
     Route: 042
     Dates: start: 20230307, end: 20230307
  9. OCRELIZUMAB [Suspect]
     Active Substance: OCRELIZUMAB
     Route: 042
     Dates: start: 20230912, end: 20230912
  10. VITAMIN D3 [Concomitant]
     Active Substance: CHOLECALCIFEROL
     Route: 048
     Dates: start: 20160226
  11. ITRACONAZOLE [Concomitant]
     Active Substance: ITRACONAZOLE
     Route: 062
     Dates: start: 20160226
  12. ZESTORETIC [Concomitant]
     Active Substance: HYDROCHLOROTHIAZIDE\LISINOPRIL
     Indication: Hypertension
     Route: 048
     Dates: start: 20180326
  13. KEPPRA [Concomitant]
     Active Substance: LEVETIRACETAM
     Indication: Epilepsy
     Route: 048
     Dates: start: 20190529
  14. ASTRAZENECA COVID-19 VACCINE [Concomitant]
     Active Substance: AZD-1222
     Route: 030
     Dates: start: 20210517, end: 20210517
  15. SOLIFENACIN [Concomitant]
     Active Substance: SOLIFENACIN
     Route: 048
     Dates: start: 20210628
  16. SOLU-CORTEF [Concomitant]
     Active Substance: HYDROCORTISONE SODIUM SUCCINATE
     Route: 042
     Dates: start: 20220302, end: 20220302
  17. CETIRIZINE [Concomitant]
     Active Substance: CETIRIZINE HYDROCHLORIDE
     Route: 048
     Dates: start: 20220302
  18. DAFALGAN [Concomitant]
     Active Substance: ACETAMINOPHEN
     Route: 048
     Dates: start: 20220302, end: 20220302
  19. LYRICA [Concomitant]
     Active Substance: PREGABALIN
     Route: 048
     Dates: end: 2020
  20. ITRACONAZOLE [Concomitant]
     Active Substance: ITRACONAZOLE
     Route: 062
     Dates: start: 20160226, end: 20201116
  21. CRANBERRY [Concomitant]
     Active Substance: CRANBERRY
     Indication: Prophylaxis
     Route: 048
     Dates: start: 20220614

REACTIONS (5)
  - Urosepsis [Recovered/Resolved]
  - Cystitis [Recovered/Resolved]
  - Ill-defined disorder [Recovered/Resolved]
  - COVID-19 [Recovered/Resolved]
  - Cystitis [Recovered/Resolved]

NARRATIVE: CASE EVENT DATE: 20210614
